FAERS Safety Report 25639517 (Version 1)
Quarter: 2025Q3

REPORT INFORMATION
  Report Type: Report from Study
  Country: US (occurrence: US)
  Receive Date: 20250804
  Receipt Date: 20250804
  Transmission Date: 20251021
  Serious: No
  Sender: AURINIA PHARMACEUTICALS
  Company Number: US-AURINIA PHARMACEUTICALS INC.-AUR-008120

PATIENT
  Sex: Male

DRUGS (1)
  1. LUPKYNIS [Suspect]
     Active Substance: VOCLOSPORIN
     Indication: Lupus nephritis
     Dosage: 23.7 MILLIGRAM, BID
     Route: 048
     Dates: start: 20240515

REACTIONS (14)
  - Blood glucose increased [Unknown]
  - Blood cholesterol increased [Unknown]
  - Migraine [Unknown]
  - Pain [Unknown]
  - Depression [Unknown]
  - Dyspnoea [Unknown]
  - Sleep disorder [Unknown]
  - Anxiety [Unknown]
  - Osteoporosis [Unknown]
  - Back pain [Unknown]
  - Neck pain [Unknown]
  - Myalgia [Unknown]
  - Arthralgia [Unknown]
  - Hypertension [Unknown]
